FAERS Safety Report 6221886-4 (Version None)
Quarter: 2009Q2

REPORT INFORMATION
  Report Type: 
  Country: None (occurrence: None)
  Receive Date: 20090609
  Receipt Date: 20090609
  Transmission Date: 20091009
  Serious: Yes (Hospitalization)
  Sender: FDA-Public Use
  Company Number: None

PATIENT
  Age: 59 Year
  Sex: Female
  Weight: 72.1219 kg

DRUGS (1)
  1. METHYLPREDNISOLONE ACETATE [Suspect]
     Indication: OSTEOARTHRITIS
     Dosage: 80MG ONCE INTRA-ARTICULAR
     Route: 014
     Dates: start: 20090604, end: 20090604

REACTIONS (5)
  - ARTHRALGIA [None]
  - ERYTHEMA [None]
  - GAIT DISTURBANCE [None]
  - JOINT EFFUSION [None]
  - JOINT SWELLING [None]
